FAERS Safety Report 11623382 (Version 1)
Quarter: 2015Q4

REPORT INFORMATION
  Report Type: Spontaneous
  Country: US (occurrence: US)
  Receive Date: 20151013
  Receipt Date: 20151013
  Transmission Date: 20160304
  Serious: No
  Sender: FDA-Public Use
  Company Number: US-JNJFOC-20150307651

PATIENT
  Age: 82 Year
  Sex: Female

DRUGS (10)
  1. METOPROLOL [Concomitant]
     Active Substance: METOPROLOL
  2. AMANTADINE [Concomitant]
     Active Substance: AMANTADINE
  3. HYDROCODONE [Concomitant]
     Active Substance: HYDROCODONE
     Dosage: 5/325
     Route: 048
  4. LISINOPRIL. [Concomitant]
     Active Substance: LISINOPRIL
  5. PARACETAMOL [Suspect]
     Active Substance: ACETAMINOPHEN
     Route: 048
  6. CARBIDOPA LEVODOPA [Concomitant]
     Active Substance: CARBIDOPA\LEVODOPA
  7. NITROGLYCERIN. [Concomitant]
     Active Substance: NITROGLYCERIN
  8. CRESTOR [Concomitant]
     Active Substance: ROSUVASTATIN CALCIUM
  9. SYNTHROID [Concomitant]
     Active Substance: LEVOTHYROXINE SODIUM
  10. PARACETAMOL [Suspect]
     Active Substance: ACETAMINOPHEN
     Indication: PRODUCT USED FOR UNKNOWN INDICATION
     Route: 048

REACTIONS (1)
  - Inappropriate schedule of drug administration [Unknown]

NARRATIVE: CASE EVENT DATE: 20130614
